FAERS Safety Report 10189945 (Version 1)
Quarter: 2014Q2

REPORT INFORMATION
  Report Type: Spontaneous
  Country: GB (occurrence: GB)
  Receive Date: 20140522
  Receipt Date: 20140522
  Transmission Date: 20141212
  Serious: Yes (Other)
  Sender: FDA-Public Use
  Company Number: PHHY2014GB061129

PATIENT
  Age: 56 Year
  Sex: Female

DRUGS (4)
  1. METFORMIN [Suspect]
     Indication: DIABETES MELLITUS
     Route: 048
     Dates: start: 20140407, end: 20140425
  2. IBUPROFEN [Concomitant]
  3. LISINOPRIL [Concomitant]
  4. PARACETAMOL [Concomitant]

REACTIONS (2)
  - Malaise [Recovered/Resolved]
  - Nausea [Recovered/Resolved]
